FAERS Safety Report 8411717-6 (Version None)
Quarter: 2012Q2

REPORT INFORMATION
  Report Type: 
  Country: None (occurrence: None)
  Receive Date: 20120605
  Receipt Date: 20120514
  Transmission Date: 20120825
  Serious: No
  Sender: FDA-Public Use
  Company Number: US-AMGEN-USASP2012030205

PATIENT
  Age: 64 Year
  Sex: Female

DRUGS (7)
  1. ACTONEL [Concomitant]
     Dosage: UNK
  2. ENBREL [Suspect]
     Indication: PRODUCT USED FOR UNKNOWN INDICATION
     Dosage: 50 MG, QWK
  3. PRILOSEC [Concomitant]
     Indication: ABDOMINAL PAIN UPPER
     Dosage: UNK
  4. NEURONTIN [Concomitant]
     Dosage: UNK
  5. METHOTREXATE [Concomitant]
     Dosage: UNK
  6. MOBIC [Concomitant]
     Dosage: UNK
  7. METFORMIN HCL [Concomitant]
     Dosage: UNK

REACTIONS (1)
  - ABDOMINAL PAIN UPPER [None]
